FAERS Safety Report 8399379-8 (Version None)
Quarter: 2012Q2

REPORT INFORMATION
  Report Type: 
  Country: None (occurrence: None)
  Receive Date: 20120323
  Receipt Date: 20110202
  Transmission Date: 20120825
  Serious: Yes (Other)
  Sender: FDA-Public Use
  Company Number: 163-21880-11010757

PATIENT
  Age: 77 Year
  Sex: Male

DRUGS (6)
  1. COUMADIN [Concomitant]
  2. ATENOLOL [Concomitant]
  3. REVLIMID [Suspect]
     Indication: MULTIPLE MYELOMA
     Dosage: 25 MG, 1 IN 1 D, PO, 15-10MG, DAILY, PO 10 MG, DAILY, PO, 15 MG, AT BEDTIME, PO
     Route: 048
     Dates: start: 20100101
  4. REVLIMID [Suspect]
     Indication: MULTIPLE MYELOMA
     Dosage: 25 MG, 1 IN 1 D, PO, 15-10MG, DAILY, PO 10 MG, DAILY, PO, 15 MG, AT BEDTIME, PO
     Route: 048
     Dates: start: 20081101
  5. REVLIMID [Suspect]
     Indication: MULTIPLE MYELOMA
     Dosage: 25 MG, 1 IN 1 D, PO, 15-10MG, DAILY, PO 10 MG, DAILY, PO, 15 MG, AT BEDTIME, PO
     Route: 048
     Dates: start: 20091101
  6. REVLIMID [Suspect]
     Indication: MULTIPLE MYELOMA
     Dosage: 25 MG, 1 IN 1 D, PO, 15-10MG, DAILY, PO 10 MG, DAILY, PO, 15 MG, AT BEDTIME, PO
     Route: 048
     Dates: start: 20080725

REACTIONS (3)
  - CONDITION AGGRAVATED [None]
  - ERYTHEMA [None]
  - ANGINA PECTORIS [None]
